FAERS Safety Report 16141684 (Version 3)
Quarter: 2019Q3

REPORT INFORMATION
  Report Type: Report from Study
  Country: None (occurrence: US)
  Receive Date: 20190401
  Receipt Date: 20190927
  Transmission Date: 20191004
  Serious: Yes (Other)
  Sender: FDA-Public Use
  Company Number: US-ABBVIE-19K-163-2725535-00

PATIENT
  Sex: Male

DRUGS (1)
  1. HUMIRA [Suspect]
     Active Substance: ADALIMUMAB
     Indication: PSORIASIS
     Route: 058

REACTIONS (5)
  - Feeling abnormal [Unknown]
  - Therapeutic product effect decreased [Unknown]
  - Mobility decreased [Unknown]
  - Road traffic accident [Unknown]
  - Brain injury [Unknown]

NARRATIVE: CASE EVENT DATE: 2016
